FAERS Safety Report 4493740-X (Version None)
Quarter: 2004Q4

REPORT INFORMATION
  Report Type: 
  Country: None (occurrence: None)
  Receive Date: 20041102
  Receipt Date: 20041020
  Transmission Date: 20050328
  Serious: Yes (Hospitalization, Other)
  Sender: FDA-Public Use
  Company Number: 2004240148FR

PATIENT
  Age: 53 Year
  Sex: Male

DRUGS (2)
  1. CAMPTOSAR [Suspect]
     Indication: OESOPHAGEAL CARCINOMA
     Dosage: 60 MG/M2, CYCLIC, IV
     Route: 042
     Dates: start: 20031201, end: 20031201
  2. CISPLATIN [Suspect]
     Indication: OESOPHAGEAL CARCINOMA
     Dosage: 30 MG/M2, CYCLIC, IV
     Route: 042
     Dates: start: 20031201, end: 20031201

REACTIONS (5)
  - ANAEMIA [None]
  - DYSPHAGIA [None]
  - GENERAL PHYSICAL HEALTH DETERIORATION [None]
  - NEUTROPENIA [None]
  - URINE ABNORMALITY [None]
